FAERS Safety Report 6186628-X (Version None)
Quarter: 2009Q2

REPORT INFORMATION
  Report Type: 
  Country: None (occurrence: None)
  Receive Date: 20090512
  Receipt Date: 20090430
  Transmission Date: 20091009
  Serious: Yes (Death)
  Sender: FDA-Public Use
  Company Number: US-PFIZER INC-2009206658

PATIENT
  Sex: Male

DRUGS (1)
  1. SUTENT [Suspect]

REACTIONS (4)
  - DEATH [None]
  - EAR HAEMORRHAGE [None]
  - EPISTAXIS [None]
  - EYE HAEMORRHAGE [None]
